FAERS Safety Report 20338227 (Version 3)
Quarter: 2022Q1

REPORT INFORMATION
  Report Type: Spontaneous
  Country: US (occurrence: US)
  Receive Date: 20220115
  Receipt Date: 20220127
  Transmission Date: 20220424
  Serious: Yes (Other)
  Sender: FDA-Public Use
  Company Number: US-UNITED THERAPEUTICS-UNT-2021-026081

PATIENT
  Age: 49 Year
  Sex: Female
  Weight: 102.04 kg

DRUGS (5)
  1. REMODULIN [Suspect]
     Active Substance: TREPROSTINIL
     Indication: Pulmonary arterial hypertension
     Dosage: UNK UNK, CONTINUING
     Route: 058
     Dates: start: 20160225
  2. REMODULIN [Suspect]
     Active Substance: TREPROSTINIL
     Dosage: 0.048 ?G/KG, CONTINUING
     Route: 058
  3. REMODULIN [Suspect]
     Active Substance: TREPROSTINIL
     Dosage: 0.046 ?G/KG, CONTINUING
     Route: 058
  4. TADALAFIL [Suspect]
     Active Substance: TADALAFIL
     Indication: Product used for unknown indication
     Dosage: UNK
     Route: 065
  5. OPSUMIT [Suspect]
     Active Substance: MACITENTAN
     Indication: Pulmonary arterial hypertension
     Dosage: 10 MG, QD
     Route: 048

REACTIONS (11)
  - Neuropathy peripheral [Not Recovered/Not Resolved]
  - Flushing [Unknown]
  - Nausea [Unknown]
  - Accidental overdose [Unknown]
  - Feeling abnormal [Unknown]
  - Dizziness [Unknown]
  - Drug dose titration not performed [Unknown]
  - Erythema [Not Recovered/Not Resolved]
  - Vomiting [Unknown]
  - Neuralgia [Not Recovered/Not Resolved]
  - Dyspnoea [Not Recovered/Not Resolved]

NARRATIVE: CASE EVENT DATE: 20211201
